FAERS Safety Report 9314508 (Version 1)
Quarter: 2013Q2

REPORT INFORMATION
  Report Type: Spontaneous
  Country: IT (occurrence: None)
  Receive Date: 20130524
  Receipt Date: 20130524
  Transmission Date: 20140414
  Serious: Yes (Other)
  Sender: FDA-Public Use
  Company Number: FK201301631

PATIENT
  Age: 42 Year
  Sex: Female

DRUGS (4)
  1. INDOMETHACIN [Suspect]
     Indication: PRODUCT USED FOR UNKNOWN INDICATION
  2. ETORICOXIB (ETORICOXIB) [Concomitant]
  3. PARACETAMOL (PARACETAMOL) [Concomitant]
  4. TRAMADOL (TRAMADOL) [Concomitant]

REACTIONS (1)
  - Angioedema [None]
